FAERS Safety Report 6579165-1 (Version None)
Quarter: 2010Q1

REPORT INFORMATION
  Report Type: 
  Country: None (occurrence: None)
  Receive Date: 20100212
  Receipt Date: 20100202
  Transmission Date: 20100710
  Serious: Yes (Other)
  Sender: FDA-Public Use
  Company Number: PHHY2010JP05783

PATIENT

DRUGS (1)
  1. EXJADE [Suspect]
     Indication: MYELOFIBROSIS
     Route: 048

REACTIONS (1)
  - GASTROINTESTINAL PERFORATION [None]
